FAERS Safety Report 6899394-7 (Version None)
Quarter: 2010Q3

REPORT INFORMATION
  Report Type: 
  Country: None (occurrence: None)
  Receive Date: 20100803
  Receipt Date: 20090509
  Transmission Date: 20110219
  Serious: No
  Sender: FDA-Public Use
  Company Number: US-PFIZER INC-2009178992

PATIENT
  Sex: Female
  Weight: 57.596 kg

DRUGS (9)
  1. NORVASC [Suspect]
     Indication: HYPERTENSION
     Dosage: 5 MG, 1X/DAY
     Route: 048
     Dates: start: 20060926
  2. PREMARIN [Concomitant]
     Dosage: UNK
  3. PROZAC [Concomitant]
     Dosage: UNK
  4. LORAZEPAM [Concomitant]
     Dosage: UNK
  5. RAMIPRIL [Concomitant]
     Dosage: UNK
  6. ALTACE [Concomitant]
  7. HYDROCHLOROTHIAZIDE [Concomitant]
  8. ATIVAN [Concomitant]
  9. NASONEX [Concomitant]

REACTIONS (2)
  - GINGIVAL HYPERPLASIA [None]
  - GINGIVITIS [None]
